FAERS Safety Report 15158624 (Version 1)
Quarter: 2018Q3

REPORT INFORMATION
  Report Type: Spontaneous
  Country: US (occurrence: US)
  Receive Date: 20180718
  Receipt Date: 20180718
  Transmission Date: 20181010
  Serious: Yes (Other)
  Sender: FDA-Public Use
  Company Number: US-BAYER-2018-133192

PATIENT
  Age: 8 Year
  Sex: Male
  Weight: 51 kg

DRUGS (1)
  1. COPPERTONE SPORT CONTINUOUS SPF 100 PLUS [Suspect]
     Active Substance: AVOBENZONE\HOMOSALATE\OCTINOXATE\OCTISALATE\OCTOCRYLENE\OXYBENZONE
     Indication: THERAPEUTIC SKIN CARE TOPICAL
     Dosage: UNK UNK, PRN
     Route: 061
     Dates: start: 20180705, end: 20180707

REACTIONS (2)
  - Skin reaction [Recovering/Resolving]
  - Sunburn [Recovering/Resolving]

NARRATIVE: CASE EVENT DATE: 20180705
